FAERS Safety Report 8852376 (Version 1)
Quarter: 2012Q4

REPORT INFORMATION
  Report Type: 
  Country: US (occurrence: US)
  Receive Date: 20121022
  Receipt Date: 20121022
  Transmission Date: 20130627
  Serious: Yes (Hospitalization)
  Sender: FDA-Public Use
  Company Number: US-VERTEX PHARMACEUTICAL INC.-AE-2012-011805

PATIENT
  Age: 63 Year
  Weight: 111 kg

DRUGS (3)
  1. INCIVEK [Suspect]
     Indication: HEPATITIS C
     Dosage: 750 mg, tid
     Route: 048
     Dates: start: 20120213, end: 20120415
  2. PEGASYS [Suspect]
     Indication: HEPATITIS C
     Dosage: 180 ?g, UNK
     Route: 058
     Dates: start: 20120213, end: 20120415
  3. RIBAVIRIN [Suspect]
     Indication: HEPATITIS C
     Dosage: 1200 mg, qd
     Route: 048
     Dates: start: 20120213, end: 20120415

REACTIONS (10)
  - Septic shock [Unknown]
  - Ischaemic hepatitis [Unknown]
  - Renal failure acute [Unknown]
  - Acute respiratory distress syndrome [Unknown]
  - Rhabdomyolysis [Recovered/Resolved]
  - Generalised oedema [Unknown]
  - Loss of consciousness [Unknown]
  - Pneumonia [Unknown]
  - Urinary tract infection [Unknown]
  - Thrombocytopenia [Unknown]
